FAERS Safety Report 9780969 (Version 1)
Quarter: 2013Q4

REPORT INFORMATION
  Report Type: Spontaneous
  Country: CH (occurrence: CH)
  Receive Date: 20131224
  Receipt Date: 20131224
  Transmission Date: 20140711
  Serious: Yes (Hospitalization)
  Sender: FDA-Public Use
  Company Number: CH-ASTRAZENECA-2013SE92776

PATIENT
  Age: 93 Year
  Sex: Male

DRUGS (12)
  1. ZESTRIL [Suspect]
     Route: 048
     Dates: start: 20130410
  2. INFLAMAC [Suspect]
     Route: 048
     Dates: start: 20131024, end: 20131101
  3. MARCOUMAR [Concomitant]
     Indication: ATRIAL FLUTTER
     Dosage: AS NECESSARY
     Route: 048
     Dates: end: 20131101
  4. MARCOUMAR [Concomitant]
     Indication: ATRIAL FIBRILLATION
     Dosage: AS NECESSARY
     Route: 048
     Dates: end: 20131101
  5. AMLODIPIN [Concomitant]
     Route: 048
  6. TOREM [Concomitant]
     Route: 048
  7. SORTIS [Concomitant]
     Route: 048
  8. FLUIMUCIL [Concomitant]
     Route: 048
  9. PANTOZOL [Concomitant]
     Route: 048
  10. DORMICUM [Concomitant]
     Route: 048
  11. ACIDUM FOLICUM STREULI [Concomitant]
     Route: 048
  12. BECOZYME [Concomitant]
     Route: 048

REACTIONS (5)
  - Cardiac failure [Recovered/Resolved]
  - Chest pain [Recovered/Resolved]
  - Cardiac asthma [Recovered/Resolved]
  - Oedema peripheral [Recovered/Resolved]
  - Renal failure [Unknown]
